FAERS Safety Report 21159567 (Version 1)
Quarter: 2022Q3

REPORT INFORMATION
  Report Type: Report from Study
  Country: CA (occurrence: CA)
  Receive Date: 20220802
  Receipt Date: 20220802
  Transmission Date: 20221026
  Serious: Yes (Hospitalization)
  Sender: FDA-Public Use
  Company Number: CA-ABBVIE-22K-028-4485911-00

PATIENT
  Sex: Female

DRUGS (1)
  1. HUMIRA [Suspect]
     Active Substance: ADALIMUMAB
     Indication: Crohn^s disease
     Route: 058
     Dates: start: 20101228

REACTIONS (14)
  - Infrequent bowel movements [Unknown]
  - Infrequent bowel movements [Unknown]
  - Crohn^s disease [Recovered/Resolved]
  - Crohn^s disease [Unknown]
  - Vomiting [Recovered/Resolved]
  - Vomiting [Unknown]
  - Abdominal pain [Unknown]
  - Malaise [Unknown]
  - Ascites [Unknown]
  - Inflammation [Unknown]
  - Abdominal distension [Unknown]
  - Abdominal tenderness [Unknown]
  - Abdominal pain lower [Unknown]
  - Abdominal pain [Recovered/Resolved]

NARRATIVE: CASE EVENT DATE: 20120101
